FAERS Safety Report 8275344-6 (Version None)
Quarter: 2012Q2

REPORT INFORMATION
  Report Type: 
  Country: None (occurrence: None)
  Receive Date: 20120411
  Receipt Date: 20120328
  Transmission Date: 20120825
  Serious: Yes (Other)
  Sender: FDA-Public Use
  Company Number: CA-ROCHE-1054302

PATIENT
  Sex: Female
  Weight: 102.15 kg

DRUGS (5)
  1. ATACAND HCT [Concomitant]
  2. JANUVIA [Concomitant]
  3. NIFEDIPINE [Concomitant]
  4. DIAMICRON [Concomitant]
  5. ACTEMRA [Suspect]
     Indication: RHEUMATOID ARTHRITIS
     Route: 042
     Dates: start: 20120127, end: 20120127

REACTIONS (1)
  - DRUG INTOLERANCE [None]
